FAERS Safety Report 23097896 (Version 3)
Quarter: 2024Q1

REPORT INFORMATION
  Report Type: Report from Study
  Country: DE (occurrence: DE)
  Receive Date: 20231023
  Receipt Date: 20240119
  Transmission Date: 20240409
  Serious: Yes (Other)
  Sender: FDA-Public Use
  Company Number: DE-ALNYLAM PHARMACEUTICALS, INC.-ALN-2023-005445

PATIENT

DRUGS (9)
  1. AMVUTTRA [Suspect]
     Active Substance: VUTRISIRAN
     Indication: Product used for unknown indication
     Dosage: 25 MILLIGRAM, Q3M
     Route: 065
     Dates: end: 20231017
  2. AMVUTTRA [Suspect]
     Active Substance: VUTRISIRAN
     Dosage: 25 MILLIGRAM, Q3M
     Route: 065
     Dates: start: 20240116
  3. CELLCEPT [Concomitant]
     Active Substance: MYCOPHENOLATE MOFETIL
     Indication: Liver transplant
     Dosage: 500 MILLIGRAM, BID
     Route: 048
  4. CYCLOSPORINE [Concomitant]
     Active Substance: CYCLOSPORINE
     Indication: Liver transplant
     Dosage: 50 MILLIGRAM, BID
     Route: 048
  5. SPIRONOLACTONE [Concomitant]
     Active Substance: SPIRONOLACTONE
     Indication: Oedema
     Dosage: 25 MILLIGRAM, QD
     Route: 048
  6. Ezetimib/atorvastatin ratiopharm [Concomitant]
     Indication: Obesity
     Dosage: 10 / 40 MG, QD
     Route: 048
  7. PANTOPRAZOLE SODIUM [Concomitant]
     Active Substance: PANTOPRAZOLE SODIUM
     Indication: Abdominal discomfort
     Dosage: 40 MILLIGRAM, QD
     Route: 048
  8. VITAMIN B12 [Concomitant]
     Active Substance: CYANOCOBALAMIN
     Indication: Amyloidosis
     Dosage: 1000 MICROGRAM, QD
     Route: 048
  9. VITAMIN D NOS [Concomitant]
     Active Substance: VITAMIN D NOS
     Indication: Amyloidosis
     Dosage: 3000 INTERNATIONAL UNIT, QD
     Route: 048

REACTIONS (5)
  - Dizziness [Not Recovered/Not Resolved]
  - Headache [Not Recovered/Not Resolved]
  - Hypoaesthesia [Not Recovered/Not Resolved]
  - Peripheral coldness [Not Recovered/Not Resolved]
  - Therapeutic response shortened [Not Recovered/Not Resolved]

NARRATIVE: CASE EVENT DATE: 20230601
